FAERS Safety Report 9992614 (Version 2)
Quarter: 2014Q2

REPORT INFORMATION
  Report Type: Spontaneous
  Country: US (occurrence: US)
  Receive Date: 20140310
  Receipt Date: 20140520
  Transmission Date: 20141212
  Serious: Yes (Other)
  Sender: FDA-Public Use
  Company Number: US-BAYER-2014-034553

PATIENT
  Age: 53 Year
  Sex: Female

DRUGS (1)
  1. GADAVIST [Suspect]
     Indication: SCAN BRAIN
     Dosage: 7.5 ML
     Route: 042
     Dates: start: 20140227, end: 20140227

REACTIONS (4)
  - Dyspnoea [Unknown]
  - Oesophageal spasm [Unknown]
  - Nausea [Unknown]
  - Vomiting [Unknown]
